FAERS Safety Report 4789416-1 (Version None)
Quarter: 2005Q4

REPORT INFORMATION
  Report Type: 
  Country: None (occurrence: None)
  Receive Date: 20051005
  Receipt Date: 20051005
  Transmission Date: 20060501
  Serious: Yes (Life-Threatening, Hospitalization)
  Sender: FDA-Public Use
  Company Number: None

PATIENT
  Age: 76 Year
  Sex: Male
  Weight: 98 kg

DRUGS (9)
  1. SIMVASTATIN [Suspect]
     Indication: BLOOD CHOLESTEROL INCREASED
     Dosage: 80 MG PO QD [LONG TIME]
     Route: 048
  2. WARFARIN [Suspect]
     Indication: ATRIAL FIBRILLATION
     Dosage: 819 MG ALT DAYS /50 MG TID PRN [LONGTIME]
     Dates: start: 20040910
  3. TRAMADOL [Suspect]
     Indication: PAIN
     Dosage: 50 MG TID PRN
     Dates: start: 20040910
  4. ATENOLOL [Concomitant]
  5. FUROSEMIDE [Concomitant]
  6. LOSARTAN/HCTZ [Concomitant]
  7. EZETIMIBA [Concomitant]
  8. ALLOPURINOL [Concomitant]
  9. EPOGEN [Concomitant]

REACTIONS (7)
  - ARTHRALGIA [None]
  - BLOOD CREATINE PHOSPHOKINASE INCREASED [None]
  - DIFFICULTY IN WALKING [None]
  - FATIGUE [None]
  - INTERNATIONAL NORMALISED RATIO INCREASED [None]
  - MYALGIA [None]
  - WEIGHT DECREASED [None]
